FAERS Safety Report 23727416 (Version 1)
Quarter: 2024Q2

REPORT INFORMATION
  Report Type: Report from Study
  Country: US (occurrence: US)
  Receive Date: 20240410
  Receipt Date: 20240410
  Transmission Date: 20240716
  Serious: Yes (Other)
  Sender: FDA-Public Use
  Company Number: US-UCBSA-2024010057

PATIENT
  Age: 84 Year
  Sex: Male

DRUGS (1)
  1. ZILUCOPLAN [Suspect]
     Active Substance: ZILUCOPLAN
     Indication: Myasthenia gravis
     Dosage: 32.4 MILLIGRAM, DAILY
     Route: 058
     Dates: start: 20240226, end: 20240402

REACTIONS (5)
  - Myasthenia gravis [Not Recovered/Not Resolved]
  - Dizziness [Recovered/Resolved]
  - Injection site pain [Recovered/Resolved]
  - Needle issue [Unknown]
  - Drug ineffective [Unknown]

NARRATIVE: CASE EVENT DATE: 20240227
